FAERS Safety Report 9214512 (Version 1)
Quarter: 2013Q2

REPORT INFORMATION
  Report Type: Spontaneous
  Country: US (occurrence: US)
  Receive Date: 20130405
  Receipt Date: 20130405
  Transmission Date: 20140414
  Serious: No
  Sender: FDA-Public Use
  Company Number: US-BAYER-2013-034524

PATIENT
  Age: 28 Year
  Sex: Female

DRUGS (1)
  1. STIVARGA [Suspect]
     Indication: COLON CANCER METASTATIC
     Dosage: UNK
     Dates: start: 201303

REACTIONS (3)
  - Blood pressure increased [None]
  - Incorrect route of drug administration [None]
  - Wrong technique in drug usage process [None]
